FAERS Safety Report 26108456 (Version 1)
Quarter: 2025Q4

REPORT INFORMATION
  Report Type: Spontaneous
  Country: CN (occurrence: CN)
  Receive Date: 20251201
  Receipt Date: 20251201
  Transmission Date: 20260118
  Serious: Yes (Hospitalization, Other)
  Sender: BAYER HEALTHCARE PHARMACEUTICALS INC.
  Company Number: CN-BAYER-2025A155633

PATIENT
  Age: 42 Year
  Sex: Male

DRUGS (5)
  1. PRAZIQUANTEL [Suspect]
     Active Substance: PRAZIQUANTEL
     Indication: Clonorchiasis
     Dosage: 210 MG/KG, TID
  2. NIMESULIDE [Suspect]
     Active Substance: NIMESULIDE
     Route: 048
  3. DEXKETOPROFEN TROMETAMOL [Suspect]
     Active Substance: DEXKETOPROFEN TROMETAMOL
     Route: 048
  4. METHYLPREDNISOLONE [Concomitant]
     Active Substance: METHYLPREDNISOLONE
     Indication: Hypersensitivity
     Dosage: 12 MG, QD
     Route: 048
  5. DEXAMETHASONE [Concomitant]
     Active Substance: DEXAMETHASONE
     Indication: Hypersensitivity
     Dosage: 5 MG, QD
     Route: 042

REACTIONS (9)
  - Drug reaction with eosinophilia and systemic symptoms [Recovering/Resolving]
  - Acute kidney injury [Recovering/Resolving]
  - Acute hepatic failure [Recovering/Resolving]
  - Sepsis [Recovering/Resolving]
  - Type IV hypersensitivity reaction [Recovering/Resolving]
  - Drug-induced liver injury [Recovering/Resolving]
  - Multiple drug hypersensitivity [None]
  - Product prescribing issue [None]
  - Inappropriate schedule of product administration [None]
